FAERS Safety Report 8356115-9 (Version None)
Quarter: 2012Q1

REPORT INFORMATION
  Report Type: 
  Country: None (occurrence: None)
  Receive Date: 20120315
  Receipt Date: 20120315
  Transmission Date: 20120608
  Serious: Yes (Other)
  Sender: FDA-Public Use
  Company Number: PHHY2011US27201

PATIENT
  Age: 57 Year
  Sex: Female
  Weight: 117 kg

DRUGS (7)
  1. GILENYA [Suspect]
     Indication: MULTIPLE SCLEROSIS
     Dosage: 0.5 MG, QD, ORAL
     Route: 048
     Dates: start: 20110202, end: 20110330
  2. VITAMIN D [Concomitant]
  3. VITAMIN B COMPLEX (CALCIUM PANTOTHENATE, NICOTINAMIDE, PYRIDOXINE HYDR [Concomitant]
  4. LASIX [Concomitant]
  5. IBUPROFEN [Concomitant]
  6. PRAVASTATIN [Concomitant]
  7. LISINOPRIL [Concomitant]

REACTIONS (2)
  - NEUTROPENIA [None]
  - CD4 LYMPHOCYTES DECREASED [None]
